FAERS Safety Report 8221097-7 (Version None)
Quarter: 2012Q1

REPORT INFORMATION
  Report Type: 
  Country: None (occurrence: None)
  Receive Date: 20120320
  Receipt Date: 20120307
  Transmission Date: 20120608
  Serious: Yes (Hospitalization, Other)
  Sender: FDA-Public Use
  Company Number: DE-ELI_LILLY_AND_COMPANY-DE201112001680

PATIENT
  Sex: Female

DRUGS (3)
  1. CALCIUM CARBONATE [Concomitant]
     Dosage: UNK, UNKNOWN
     Route: 065
  2. VITAMIN D [Concomitant]
     Dosage: UNK, UNKNOWN
     Route: 065
  3. FORTEO [Suspect]
     Indication: OSTEOPOROSIS
     Dosage: UNK, QD
     Route: 058
     Dates: start: 20101208

REACTIONS (4)
  - FEMUR FRACTURE [None]
  - OSTEONECROSIS [None]
  - HIP FRACTURE [None]
  - IMPAIRED HEALING [None]
